FAERS Safety Report 7315017-7 (Version None)
Quarter: 2011Q1

REPORT INFORMATION
  Report Type: 
  Country: None (occurrence: None)
  Receive Date: 20110225
  Receipt Date: 20100322
  Transmission Date: 20110831
  Serious: No
  Sender: FDA-Public Use
  Company Number: US-MYLANLABS-2010S1003903

PATIENT
  Age: 12 Year
  Sex: Female
  Weight: 48.08 kg

DRUGS (3)
  1. AMNESTEEM [Suspect]
     Dosage: ONE DOSE ONLY
     Dates: end: 20100304
  2. AMNESTEEM [Suspect]
     Indication: ACNE
     Dates: start: 20091223
  3. ORAL CONTRACEPTIVE NOS [Concomitant]
     Dates: start: 20091110, end: 20100301

REACTIONS (1)
  - HEADACHE [None]
